FAERS Safety Report 4450923-2 (Version None)
Quarter: 2004Q3

REPORT INFORMATION
  Report Type: 
  Country: None (occurrence: None)
  Receive Date: 20040916
  Receipt Date: 20030409
  Transmission Date: 20050211
  Serious: Yes (Other)
  Sender: FDA-Public Use
  Company Number: US-BRISTOL-MYERS SQUIBB COMPANY-12244877

PATIENT
  Age: 45 Year
  Sex: Female

DRUGS (13)
  1. STADOL [Suspect]
     Route: 045
     Dates: start: 19960503, end: 20001010
  2. STADOL [Suspect]
     Dosage: ROUTE: INJECTION
     Dates: start: 19960513, end: 20010214
  3. PHENERGAN HCL [Concomitant]
  4. SYNTHROID [Concomitant]
  5. ULTRAM [Concomitant]
  6. SKELAXIN [Concomitant]
  7. HYDROCODONE + ACETAMINOPHEN [Concomitant]
  8. CARISOPRODOL [Concomitant]
  9. VALIUM [Concomitant]
  10. PROPOXYPHENE HCL+APAP+CAFFEINE [Concomitant]
  11. PREDNISONE [Concomitant]
  12. HYDROXYZINE [Concomitant]
  13. ALPRAZOLAM [Concomitant]

REACTIONS (1)
  - DEPENDENCE [None]
